FAERS Safety Report 25366691 (Version 2)
Quarter: 2025Q2

REPORT INFORMATION
  Report Type: Report from Study
  Country: US (occurrence: US)
  Receive Date: 20250528
  Receipt Date: 20250608
  Transmission Date: 20250716
  Serious: Yes (Other)
  Sender: ABBVIE
  Company Number: US-ABBVIE-6148179

PATIENT
  Age: 47 Year
  Sex: Male

DRUGS (1)
  1. SKYRIZI [Suspect]
     Active Substance: RISANKIZUMAB-RZAA
     Indication: Colitis ulcerative
     Route: 042
     Dates: start: 20250213

REACTIONS (7)
  - Brain abscess [Recovered/Resolved]
  - Fatigue [Recovered/Resolved]
  - Muscular weakness [Not Recovered/Not Resolved]
  - Dysarthria [Recovered/Resolved]
  - Vision blurred [Recovered/Resolved]
  - Coordination abnormal [Recovered/Resolved]
  - Fatigue [Not Recovered/Not Resolved]

NARRATIVE: CASE EVENT DATE: 20250215
